FAERS Safety Report 14250129 (Version 1)
Quarter: 2017Q4

REPORT INFORMATION
  Report Type: Spontaneous
  Country: AU (occurrence: AU)
  Receive Date: 20171205
  Receipt Date: 20171205
  Transmission Date: 20180321
  Serious: Yes (Hospitalization)
  Sender: FDA-Public Use
  Company Number: AU-REGULIS-2036620

PATIENT
  Age: 15 Year
  Sex: Male
  Weight: 70 kg

DRUGS (22)
  1. ROCURONIUM [Concomitant]
     Active Substance: ROCURONIUM BROMIDE
  2. LEVETIRACETAM. [Concomitant]
     Active Substance: LEVETIRACETAM
  3. METHYLENE BLUE. [Suspect]
     Active Substance: METHYLENE BLUE
     Indication: HYPOTENSION
     Route: 040
  4. VENLAFAXINE [Interacting]
     Active Substance: VENLAFAXINE HYDROCHLORIDE
  5. DESVENLAFAXINE. [Interacting]
     Active Substance: DESVENLAFAXINE
  6. FLUOXETINE [Interacting]
     Active Substance: FLUOXETINE HYDROCHLORIDE
  7. AMLODIPINE [Concomitant]
     Active Substance: AMLODIPINE BESYLATE
     Route: 048
  8. VASOPRESSIN. [Concomitant]
     Active Substance: VASOPRESSIN
  9. LITHIUM. [Concomitant]
     Active Substance: LITHIUM
  10. ACTIVATED CHARCOAL [Concomitant]
     Active Substance: ACTIVATED CHARCOAL
  11. NOREPINEPHRINE. [Concomitant]
     Active Substance: NOREPINEPHRINE
  12. VASOPRESSIN. [Concomitant]
     Active Substance: VASOPRESSIN
  13. RAMIPRIL. [Concomitant]
     Active Substance: RAMIPRIL
     Route: 048
  14. CRYSTALLOID FLUID [Concomitant]
  15. METARAMINOL [Concomitant]
     Active Substance: METARAMINOL
  16. FENTANYL. [Concomitant]
     Active Substance: FENTANYL
  17. CALCIUM GLUCONATE. [Concomitant]
     Active Substance: CALCIUM GLUCONATE
  18. MIDAZOLAM [Concomitant]
     Active Substance: MIDAZOLAM HYDROCHLORIDE
  19. QUETIAPINE. [Concomitant]
     Active Substance: QUETIAPINE
     Route: 048
  20. QUETIAPINE. [Concomitant]
     Active Substance: QUETIAPINE
     Route: 048
  21. NOREPINEPHRINE. [Concomitant]
     Active Substance: NOREPINEPHRINE
  22. PROMETHAZINE [Concomitant]
     Active Substance: PROMETHAZINE\PROMETHAZINE HYDROCHLORIDE
     Route: 048

REACTIONS (9)
  - Oliguria [Recovered/Resolved]
  - Pupil fixed [Recovered/Resolved]
  - Pyrexia [Recovered/Resolved]
  - Clonus [Recovered/Resolved]
  - Off label use [None]
  - Serotonin syndrome [Recovered/Resolved]
  - Hypertonia [Recovered/Resolved]
  - Autonomic nervous system imbalance [Recovered/Resolved]
  - Muscle rigidity [Recovered/Resolved]
